FAERS Safety Report 4627639-2 (Version None)
Quarter: 2005Q2

REPORT INFORMATION
  Report Type: 
  Country: None (occurrence: None)
  Receive Date: 20050401
  Receipt Date: 20050401
  Transmission Date: 20051028
  Serious: Yes (Life-Threatening, Hospitalization)
  Sender: FDA-Public Use
  Company Number: None

PATIENT
  Age: 56 Year
  Sex: Male
  Weight: 99.4 kg

DRUGS (2)
  1. HALOPERIDOL [Suspect]
     Indication: AGITATION
     Dosage: 5 MG PRN   INTRAVENOUS
     Route: 042
     Dates: start: 20050301, end: 20050303
  2. ZIPRASIDONE 20 MG [Suspect]
     Indication: AGITATION
     Dosage: 20 MG X1 DOSEIN INTRAMUSCU
     Route: 030
     Dates: start: 20050302, end: 20050302

REACTIONS (4)
  - BODY TEMPERATURE INCREASED [None]
  - CONFUSIONAL STATE [None]
  - CONVULSION [None]
  - THERAPEUTIC PRODUCT INEFFECTIVE [None]
